FAERS Safety Report 5906216-7 (Version None)
Quarter: 2008Q4

REPORT INFORMATION
  Report Type: 
  Country: None (occurrence: None)
  Receive Date: 20081002
  Receipt Date: 20080929
  Transmission Date: 20090506
  Serious: Yes (Hospitalization, Other)
  Sender: FDA-Public Use
  Company Number: FR-ABBOTT-08P-056-0478472-00

PATIENT
  Age: 17 Year
  Sex: Male

DRUGS (2)
  1. KALETRA [Suspect]
     Indication: HIV TEST POSITIVE
     Route: 048
     Dates: start: 20070101
  2. INDINIVIR SULFATE [Suspect]
     Indication: HIV TEST POSITIVE
     Route: 048
     Dates: start: 20070101

REACTIONS (3)
  - GRANULOMA [None]
  - RENAL FAILURE [None]
  - TUBULOINTERSTITIAL NEPHRITIS [None]
